FAERS Safety Report 8794669 (Version 2)
Quarter: 2013Q1

REPORT INFORMATION
  Report Type: Report from Study
  Country: US (occurrence: US)
  Receive Date: 20120917
  Receipt Date: 20130115
  Transmission Date: 20140127
  Serious: No
  Sender: FDA-Public Use
  Company Number: US-VERTEX PHARMACEUTICAL INC.-2012-019886

PATIENT
  Sex: Male
  Weight: 102 kg

DRUGS (5)
  1. VX-950 (TELAPREVIR) [Suspect]
     Indication: HEPATITIS C
     Dosage: 750 MG, TID
     Route: 048
     Dates: start: 2012
  2. PEGASYS [Suspect]
     Indication: HEPATITIS C
     Dosage: 180 ?G, QW
     Route: 058
     Dates: start: 2012
  3. RIBASPHERE [Suspect]
     Indication: HEPATITIS C
     Dosage: 600 MG, BID
     Route: 048
     Dates: start: 2012
  4. RIBASPHERE [Suspect]
     Dosage: DOSE REDUCED
  5. RIBASPHERE [Suspect]
     Dosage: 600 MG, BID

REACTIONS (7)
  - Blood pressure decreased [Recovered/Resolved]
  - Blood pressure increased [Unknown]
  - Vertigo [Unknown]
  - Dry skin [Unknown]
  - Fatigue [Unknown]
  - Rash generalised [Recovered/Resolved]
  - Pruritus [Unknown]
